FAERS Safety Report 17885049 (Version 1)
Quarter: 2020Q2

REPORT INFORMATION
  Report Type: Spontaneous
  Country: US (occurrence: US)
  Receive Date: 20200611
  Receipt Date: 20200611
  Transmission Date: 20200714
  Serious: No
  Sender: FDA-Public Use
  Company Number: US-SA-2020SA135747

PATIENT
  Sex: Male

DRUGS (1)
  1. DUPIXENT [Suspect]
     Active Substance: DUPILUMAB
     Indication: NASAL POLYPS
     Dosage: 2 ML, QOW
     Route: 058
     Dates: start: 202004

REACTIONS (2)
  - Injection site rash [Unknown]
  - Eyelid pain [Unknown]

NARRATIVE: CASE EVENT DATE: 2020
